FAERS Safety Report 20190622 (Version 1)
Quarter: 2021Q4

REPORT INFORMATION
  Report Type: Spontaneous
  Country: US (occurrence: None)
  Receive Date: 20211216
  Receipt Date: 20211216
  Transmission Date: 20220303
  Serious: No
  Sender: FDA-Public Use
  Company Number: US-MDD US Operations-SUP202108-001655

PATIENT
  Age: 52 Year
  Sex: Female

DRUGS (3)
  1. TROKENDI XR [Suspect]
     Active Substance: TOPIRAMATE
     Indication: Migraine
     Route: 048
     Dates: start: 2020
  2. TROKENDI XR [Suspect]
     Active Substance: TOPIRAMATE
     Indication: Migraine
     Route: 048
     Dates: start: 2021
  3. PAROXETINE [Concomitant]
     Active Substance: PAROXETINE

REACTIONS (2)
  - Anxiety [Recovering/Resolving]
  - Depression [Recovering/Resolving]

NARRATIVE: CASE EVENT DATE: 20210101
